FAERS Safety Report 15319888 (Version 1)
Quarter: 2018Q3

REPORT INFORMATION
  Report Type: Spontaneous
  Country: DK (occurrence: DK)
  Receive Date: 20180827
  Receipt Date: 20180827
  Transmission Date: 20181010
  Serious: Yes (Death, Other)
  Sender: FDA-Public Use
  Company Number: DK-B.I. PHARMACEUTICALS,INC./RIDGEFIELD-2018-12-002874

PATIENT
  Age: 87 Year
  Sex: Male

DRUGS (7)
  1. VANCOMYCIN [Concomitant]
     Active Substance: VANCOMYCIN
     Indication: ENDOCARDITIS
     Dosage: STRENGHT AND DOSE UNKNOWN
     Dates: start: 20180724
  2. ULTIBRO BREEZHALER [Concomitant]
     Active Substance: GLYCOPYRRONIUM\INDACATEROL
     Indication: CHRONIC OBSTRUCTIVE PULMONARY DISEASE
     Dosage: STRENGTH 85+43 MICROGRAM;
     Route: 055
     Dates: start: 20170816
  3. LINEZOLID. [Concomitant]
     Active Substance: LINEZOLID
     Indication: ENDOCARDITIS
     Dosage: STRENGTH:STRENGTH AND DOSE UNKNOWN
     Route: 065
     Dates: start: 20180724
  4. PRAXBIND [Suspect]
     Active Substance: IDARUCIZUMAB
     Indication: TOXICITY TO VARIOUS AGENTS
     Dosage: STRENGTH: 2.5 GRAM / 50 ML
     Route: 042
     Dates: start: 20180814
  5. FURIX [Concomitant]
     Active Substance: FUROSEMIDE
     Indication: DIURETIC THERAPY
     Dosage: STRENGTH:  40 MG
     Route: 048
     Dates: start: 20160711
  6. SPIRIX [Concomitant]
     Active Substance: SPIRONOLACTONE
     Indication: DIURETIC THERAPY
     Dosage: STRENGTH : 25 MG
     Route: 048
     Dates: start: 20160711
  7. VENTOLINE [Concomitant]
     Active Substance: ALBUTEROL
     Indication: BRONCHOSPASM
     Dosage: STRENGTH: 0.2 MG IN DISC. DOSE: 1 INHALATION WHEN NEEDED
     Route: 055
     Dates: start: 20180604

REACTIONS (3)
  - Gastrointestinal haemorrhage [Fatal]
  - Therapeutic product ineffective [Fatal]
  - Shock haemorrhagic [Fatal]

NARRATIVE: CASE EVENT DATE: 20180814
